FAERS Safety Report 8896140 (Version 1)
Quarter: 2012Q4

REPORT INFORMATION
  Report Type: 
  Country: US (occurrence: US)
  Receive Date: 20121108
  Receipt Date: 20121108
  Transmission Date: 20130627
  Serious: Yes (Other)
  Sender: FDA-Public Use
  Company Number: US-BAYER-2012-114614

PATIENT
  Age: 33 Year
  Sex: Female

DRUGS (1)
  1. MIRENA [Suspect]
     Dosage: 20 mcg/24hr, CONT
     Route: 015
     Dates: start: 2005

REACTIONS (9)
  - Device dislocation [None]
  - Pelvic inflammatory disease [None]
  - Weight increased [None]
  - Headache [None]
  - Abdominal pain lower [None]
  - Depression [None]
  - Bipolar disorder [None]
  - Amenorrhoea [None]
  - Incorrect drug administration duration [None]
